FAERS Safety Report 11801138 (Version 3)
Quarter: 2016Q1

REPORT INFORMATION
  Report Type: Report from Study
  Country: US (occurrence: US)
  Receive Date: 20151204
  Receipt Date: 20160104
  Transmission Date: 20160525
  Serious: Yes (Hospitalization, Other)
  Sender: FDA-Public Use
  Company Number: US-BAYER-2015-447639

PATIENT
  Age: 49 Year
  Sex: Male

DRUGS (1)
  1. STIVARGA [Suspect]
     Active Substance: REGORAFENIB
     Indication: COLORECTAL CANCER
     Dosage: 160 MG, QD
     Route: 048
     Dates: start: 20151008, end: 20151207

REACTIONS (25)
  - Blood potassium increased [None]
  - Asthenia [None]
  - Epistaxis [None]
  - Skin ulcer [None]
  - Paraesthesia [None]
  - Pain in extremity [None]
  - Dizziness [None]
  - Gait disturbance [None]
  - Fatigue [Not Recovered/Not Resolved]
  - Paraesthesia [None]
  - Vomiting [None]
  - Nausea [None]
  - Weight decreased [None]
  - Drug ineffective [None]
  - Diarrhoea [None]
  - Constipation [None]
  - Headache [None]
  - Tremor [None]
  - Herpes zoster [None]
  - Nausea [None]
  - Anticonvulsant drug level above therapeutic [None]
  - Dysphonia [None]
  - Decreased appetite [Not Recovered/Not Resolved]
  - Vision blurred [None]
  - Vision blurred [None]

NARRATIVE: CASE EVENT DATE: 201510
